FAERS Safety Report 18481857 (Version 1)
Quarter: 2020Q4

REPORT INFORMATION
  Report Type: Spontaneous
  Country: US (occurrence: US)
  Receive Date: 20201109
  Receipt Date: 20201109
  Transmission Date: 20210114
  Serious: No
  Sender: FDA-Public Use
  Company Number: US-ALKERMES INC.-ALK-2020-004985

PATIENT
  Age: 28 Year
  Sex: Male
  Weight: 97.51 kg

DRUGS (1)
  1. VIVITROL [Suspect]
     Active Substance: NALTREXONE
     Indication: ALCOHOLISM
     Dosage: 380 MILLIGRAM, QMO
     Route: 030

REACTIONS (11)
  - Hallucination, visual [Recovered/Resolved]
  - Sleep disorder [Unknown]
  - Screaming [Unknown]
  - Nightmare [Unknown]
  - Speech disorder [Unknown]
  - Abnormal behaviour [Unknown]
  - Aggression [Unknown]
  - Blood alcohol increased [Recovered/Resolved]
  - Alcoholism [Not Recovered/Not Resolved]
  - Dysarthria [Unknown]
  - Anxiety [Unknown]
